FAERS Safety Report 7607247-1 (Version None)
Quarter: 2011Q3

REPORT INFORMATION
  Report Type: 
  Country: None (occurrence: None)
  Receive Date: 20110713
  Receipt Date: 20110705
  Transmission Date: 20111222
  Serious: Yes (Death)
  Sender: FDA-Public Use
  Company Number: IT-MILLENNIUM PHARMACEUTICALS, INC.-2011-02858

PATIENT

DRUGS (2)
  1. VELCADE [Suspect]
     Indication: LEUKAEMIA PLASMACYTIC
  2. THALIDOMIDE [Suspect]
     Indication: LEUKAEMIA PLASMACYTIC

REACTIONS (1)
  - DEATH [None]
